FAERS Safety Report 9423649 (Version 1)
Quarter: 2013Q3

REPORT INFORMATION
  Report Type: Report from Study
  Country: JP (occurrence: JP)
  Receive Date: 20130726
  Receipt Date: 20130726
  Transmission Date: 20140515
  Serious: Yes (Hospitalization, Other)
  Sender: FDA-Public Use
  Company Number: JP-009507513-1210USA014224

PATIENT
  Age: 58 Year
  Sex: Male
  Weight: 51.7 kg

DRUGS (19)
  1. JANUVIA TABLETS 50MG [Suspect]
     Indication: DIABETES MELLITUS
     Dosage: 50 MG, QD
     Route: 048
     Dates: start: 20120620, end: 20120823
  2. STUDY DRUG (UNSPECIFIED) [Suspect]
     Indication: DEMENTIA ALZHEIMER^S TYPE
     Dosage: UNK
     Route: 030
     Dates: start: 20111021, end: 20111021
  3. STUDY DRUG (UNSPECIFIED) [Suspect]
     Dosage: UNK
     Route: 030
     Dates: end: 20120420
  4. SAIREI-TO [Suspect]
     Indication: SUBDURAL HAEMATOMA
     Dosage: 2.7 G, TID
     Route: 048
     Dates: start: 20120630, end: 20120816
  5. RISPERDAL [Suspect]
     Indication: IRRITABILITY
     Dosage: UNK
     Dates: start: 20120615, end: 20120617
  6. RISPERDAL [Suspect]
     Dosage: 0.5 MG, TID
     Route: 048
     Dates: start: 20120618, end: 20120705
  7. RISPERDAL [Suspect]
     Dosage: 1 MG, QD
     Route: 048
     Dates: start: 20120730, end: 201208
  8. RISPERDAL [Suspect]
     Dosage: UNK
     Route: 048
     Dates: start: 20120803, end: 20120827
  9. AMARYL [Suspect]
     Dosage: 0.5 MG, QD
     Route: 048
     Dates: start: 20120626, end: 20120704
  10. AMARYL [Suspect]
     Dosage: 1 MG, QD
     Route: 048
     Dates: start: 20120705, end: 20120711
  11. AMARYL [Suspect]
     Dosage: 1.5 MG, QD
     Route: 048
     Dates: start: 20120712, end: 20120823
  12. ARICEPT [Concomitant]
     Dosage: UNK
     Route: 048
     Dates: start: 20090929, end: 20120704
  13. ARICEPT [Concomitant]
     Dosage: UNK
  14. BASEN [Concomitant]
     Dosage: UNK
     Route: 048
     Dates: start: 200904
  15. BASEN [Concomitant]
     Dosage: UNK
     Route: 048
     Dates: start: 20120609, end: 20120823
  16. MAGMITT [Concomitant]
     Dosage: UNK
     Dates: start: 20120808, end: 20130222
  17. LAXOBERON [Concomitant]
     Dosage: UNK
     Dates: start: 20120608
  18. GLYCERIN/GLYCERIN (+) MENTHOL (+) XYLITOL [Concomitant]
     Dosage: UNK
     Dates: start: 20120627
  19. NIZORAL [Concomitant]
     Dosage: UNK
     Dates: start: 20120725, end: 20120810

REACTIONS (5)
  - Hepatic function abnormal [Recovered/Resolved]
  - Cerebral atrophy [Not Recovered/Not Resolved]
  - Cerebral ventricle dilatation [Not Recovered/Not Resolved]
  - Normal pressure hydrocephalus [Unknown]
  - Sepsis [Recovered/Resolved]
